FAERS Safety Report 11686572 (Version 2)
Quarter: 2015Q4

REPORT INFORMATION
  Report Type: Spontaneous
  Country: FR (occurrence: FR)
  Receive Date: 20151030
  Receipt Date: 20151112
  Transmission Date: 20160304
  Serious: Yes (Other)
  Sender: FDA-Public Use
  Company Number: FR-INCYTE CORPORATION-2015IN005404

PATIENT
  Age: 55 Year
  Sex: Female

DRUGS (4)
  1. JAKAFI [Suspect]
     Active Substance: RUXOLITINIB
     Dosage: 10 MG, BID
     Route: 048
     Dates: start: 201205
  2. JAKAFI [Suspect]
     Active Substance: RUXOLITINIB
     Dosage: 10 MG, BID  (2 TABLETS, PER DAY)
     Route: 048
     Dates: start: 20120219, end: 20120322
  3. JAKAFI [Suspect]
     Active Substance: RUXOLITINIB
     Dosage: 5 MG, BID  (2 TABLETS, PER DAY)
     Route: 048
     Dates: start: 20120323
  4. JAKAFI [Suspect]
     Active Substance: RUXOLITINIB
     Indication: MYELOFIBROSIS
     Dosage: 20 MG, BID  (2 TABLETS, PER DAY)
     Route: 048
     Dates: start: 20120119, end: 20120219

REACTIONS (4)
  - Abnormal behaviour [Recovered/Resolved]
  - Urinary tract infection [Unknown]
  - Asthenia [Recovered/Resolved]
  - Thrombocytopenia [Recovered/Resolved]

NARRATIVE: CASE EVENT DATE: 201202
